FAERS Safety Report 23260664 (Version 1)
Quarter: 2023Q4

REPORT INFORMATION
  Report Type: Spontaneous
  Country: US (occurrence: US)
  Receive Date: 20231205
  Receipt Date: 20231205
  Transmission Date: 20240109
  Serious: No
  Sender: FDA-Public Use
  Company Number: US-SANDOZ-SDZ2023US063491

PATIENT
  Sex: Female

DRUGS (2)
  1. BRIMONIDINE TARTRATE [Suspect]
     Active Substance: BRIMONIDINE TARTRATE
     Indication: Product used for unknown indication
     Dosage: 1 DROP IN EACH EYE IN THE MORNING AND EVENING , FOR A TOTAL OF 4 DROPS PER DAY
     Route: 047
  2. TIMOLOL [Concomitant]
     Active Substance: TIMOLOL
     Indication: Product used for unknown indication
     Dosage: 1 DROP, QD
     Route: 047

REACTIONS (4)
  - Wrist fracture [Unknown]
  - Impaired driving ability [Unknown]
  - Product container issue [Unknown]
  - Product dose omission issue [Unknown]
